FAERS Safety Report 20090128 (Version 2)
Quarter: 2021Q4

REPORT INFORMATION
  Report Type: Report from Study
  Country: BE (occurrence: BE)
  Receive Date: 20211119
  Receipt Date: 20211206
  Transmission Date: 20220303
  Serious: Yes (Hospitalization, Disabling)
  Sender: FDA-Public Use
  Company Number: BE-NOVARTISPH-NVSC2021BE257693

PATIENT
  Age: 81 Year
  Sex: Female
  Weight: 52 kg

DRUGS (16)
  1. KISQALI [Suspect]
     Active Substance: RIBOCICLIB
     Indication: Breast cancer
     Dosage: 600 MG
     Route: 065
     Dates: start: 20210903, end: 20211021
  2. KISQALI [Suspect]
     Active Substance: RIBOCICLIB
     Dosage: UNK, QD
     Route: 048
     Dates: end: 20211105
  3. FEMARA [Suspect]
     Active Substance: LETROZOLE
     Indication: Breast cancer
     Dosage: 2.5 MG, QD (MORNING 08AM), (ANTI-HORMONE PILL TO TAKE CONTINUOUSLY)
     Route: 048
     Dates: start: 20210818
  4. PANTOMED [Concomitant]
     Indication: Product used for unknown indication
     Dosage: 40 MG, QD (MORNING 8 AM, 30 MIN BEFORE BREAKFAST-MEDICATION INTAKE)
     Route: 048
  5. ALIZAPRIDE HYDROCHLORIDE [Concomitant]
     Active Substance: ALIZAPRIDE HYDROCHLORIDE
     Indication: Product used for unknown indication
     Dosage: 50 MG, QD, (MORNING 08 AM, AFTERNOON 12PM, EVENING 05PM), 3X SYSTEMATICALLY BEFORE THE MEAL, CAN STI
     Route: 048
  6. CALCIUM CARBONATE\CHOLECALCIFEROL [Concomitant]
     Active Substance: CALCIUM CARBONATE\CHOLECALCIFEROL
     Indication: Product used for unknown indication
     Dosage: 1000 MG-800 U, QD (EVENING 08PM)
     Route: 048
  7. CO BISOPROLOL EG [Concomitant]
     Indication: Product used for unknown indication
     Dosage: 5-12.5 MG, QD (MORNING 08AM)
     Route: 048
  8. TRAMADOL [Concomitant]
     Active Substance: TRAMADOL
     Indication: Pain
     Dosage: 50 MG, QD (MORNING 08AM, EVENING 08PM)
     Route: 048
  9. TRAMADOL [Concomitant]
     Active Substance: TRAMADOL
     Dosage: 50 MG, MAX 1 TABLET 4 TIMES A DAY, FOR PAIN EVERY 6 HOURS
     Route: 048
  10. SEROQUEL [Concomitant]
     Active Substance: QUETIAPINE FUMARATE
     Indication: Delirium
     Dosage: 12.5 MG, QD (NIGHT 10PM)
     Route: 048
  11. ALPRAZOLAM [Concomitant]
     Active Substance: ALPRAZOLAM
     Indication: Product used for unknown indication
     Dosage: 0.5 MG, QD, DOSE PER INTAKE 1 TABLET BEFORE SLEEPING
     Route: 048
  12. DULOXETINE [Concomitant]
     Active Substance: DULOXETINE
     Indication: Product used for unknown indication
     Dosage: 60 MG, QD
     Route: 048
  13. SODIUM PICOSULFATE [Concomitant]
     Active Substance: SODIUM PICOSULFATE
     Indication: Constipation
     Dosage: 10 PER INTAKE, (MAX ONCE A DAY)
     Route: 048
  14. MOVICOL [Concomitant]
     Active Substance: POLYETHYLENE GLYCOL 3350\POTASSIUM CHLORIDE\SODIUM BICARBONATE\SODIUM CHLORIDE
     Indication: Constipation
     Dosage: 25 ML (=13.8 G), MAX 1 SACHET TWICE A DAY
     Route: 048
  15. ACETAMINOPHEN [Concomitant]
     Active Substance: ACETAMINOPHEN
     Indication: Pain
     Dosage: 1 G, MAX 1 TABLET 3 TIMES A DAY
     Route: 048
  16. ENEMA (SODIUM PHOSPHATE, DIBASIC\SODIUM PHOSPHATE, MONOBASIC) [Concomitant]
     Active Substance: SODIUM PHOSPHATE, DIBASIC\SODIUM PHOSPHATE, MONOBASIC
     Indication: Constipation
     Dosage: 1 PIECE, ON THE ANUS, ONE TIME ENEMA
     Route: 065

REACTIONS (26)
  - COVID-19 [Recovered/Resolved]
  - Dyspnoea [Recovered/Resolved]
  - Ankle fracture [Unknown]
  - Pleural effusion [Unknown]
  - Dyspnoea [Unknown]
  - Fall [Unknown]
  - Confusional state [Unknown]
  - Alpha-1 antitrypsin deficiency [Unknown]
  - Mean cell volume increased [Unknown]
  - Mean cell haemoglobin [Unknown]
  - Red cell distribution width increased [Unknown]
  - Neutrophil count increased [Unknown]
  - Lymphocyte count decreased [Unknown]
  - Blood phosphorus decreased [Unknown]
  - Blood glucose increased [Unknown]
  - Gamma-glutamyltransferase increased [Unknown]
  - Blood lactate dehydrogenase increased [Unknown]
  - C-reactive protein increased [Unknown]
  - pH body fluid increased [Unknown]
  - PO2 decreased [Unknown]
  - Base excess increased [Unknown]
  - Oxygen saturation decreased [Unknown]
  - Red blood cells urine positive [Unknown]
  - Protein urine present [Unknown]
  - Coagulopathy [Unknown]
  - Urobilinogen urine increased [Unknown]

NARRATIVE: CASE EVENT DATE: 20211107
